FAERS Safety Report 4693938-1 (Version None)
Quarter: 2005Q2

REPORT INFORMATION
  Report Type: 
  Country: None (occurrence: None)
  Receive Date: 20050617
  Receipt Date: 20030605
  Transmission Date: 20051028
  Serious: Yes (Hospitalization, Other)
  Sender: FDA-Public Use
  Company Number: US-MERCK-0306USA00697

PATIENT
  Age: 71 Year
  Sex: Female
  Weight: 84 kg

DRUGS (8)
  1. VIOXX [Suspect]
     Indication: OSTEOARTHRITIS
     Route: 048
  2. VIOXX [Suspect]
     Indication: CARPAL TUNNEL SYNDROME
     Route: 048
  3. TENORMIN [Concomitant]
     Indication: HYPERTENSION
     Route: 065
  4. TENORMIN [Concomitant]
     Indication: FAMILIAL TREMOR
     Route: 065
  5. BAYCOL [Concomitant]
     Indication: HYPERLIPIDAEMIA
     Route: 065
  6. OGEN [Concomitant]
     Indication: POSTMENOPAUSE
     Route: 065
  7. LIPITOR [Concomitant]
     Route: 065
  8. ATENOLOL [Concomitant]
     Route: 065

REACTIONS (13)
  - ADVERSE EVENT [None]
  - ANGINA PECTORIS [None]
  - ANGINA UNSTABLE [None]
  - BLOOD PRESSURE INCREASED [None]
  - BLOOD UREA INCREASED [None]
  - CONVULSION [None]
  - CORONARY ARTERY DISEASE [None]
  - ELECTROCARDIOGRAM REPOLARISATION ABNORMALITY [None]
  - HAEMOPTYSIS [None]
  - MYOCARDIAL INFARCTION [None]
  - MYOCARDIAL ISCHAEMIA [None]
  - SYNCOPE [None]
  - VENTRICULAR HYPERTROPHY [None]
